FAERS Safety Report 26217968 (Version 1)
Quarter: 2025Q4

REPORT INFORMATION
  Report Type: Report from Study
  Country: US (occurrence: US)
  Receive Date: 20251231
  Receipt Date: 20251231
  Transmission Date: 20260118
  Serious: Yes (Other)
  Sender: TAKEDA
  Company Number: US-TAKEDA-2025TUS100058

PATIENT
  Sex: Female
  Weight: 77 kg

DRUGS (6)
  1. LANADELUMAB [Suspect]
     Active Substance: LANADELUMAB
     Indication: Immune system disorder
     Dosage: 300 MILLIGRAM, Q2WEEKS
  2. LANADELUMAB [Suspect]
     Active Substance: LANADELUMAB
     Dosage: 300 MILLIGRAM, Q2WEEKS
  3. LANADELUMAB [Suspect]
     Active Substance: LANADELUMAB
  4. ICATIBANT [Concomitant]
     Active Substance: ICATIBANT ACETATE
     Dosage: UNK
  5. ORLADEYO [Concomitant]
     Active Substance: BEROTRALSTAT HYDROCHLORIDE
     Dosage: UNK
  6. EKTERLY [Concomitant]
     Active Substance: SEBETRALSTAT
     Dosage: UNK

REACTIONS (9)
  - Vagus nerve disorder [Unknown]
  - Liver disorder [Unknown]
  - Gallbladder disorder [Unknown]
  - Insomnia [Unknown]
  - Stress [Unknown]
  - Pregnancy [Not Recovered/Not Resolved]
  - Mycotic allergy [Unknown]
  - Diarrhoea [Unknown]
  - Hereditary angioedema [Unknown]
